FAERS Safety Report 7990870-2 (Version None)
Quarter: 2011Q4

REPORT INFORMATION
  Report Type: 
  Country: None (occurrence: None)
  Receive Date: 20111219
  Receipt Date: 20111207
  Transmission Date: 20120403
  Serious: Yes (Hospitalization, Disabling)
  Sender: FDA-Public Use
  Company Number: FR-SANOFI-AVENTIS-2011SA070894

PATIENT
  Age: 76 Year
  Sex: Male
  Weight: 83 kg

DRUGS (9)
  1. TAMSULOSIN HCL [Concomitant]
     Dates: start: 20080412, end: 20080910
  2. PERMIXON [Concomitant]
     Dates: start: 20071024, end: 20080910
  3. BROMAZEPAM [Concomitant]
  4. ACETAMINOPHEN AND TRAMADOL HCL [Concomitant]
  5. TILCOTIL [Concomitant]
  6. ACETAMINOPHEN [Concomitant]
  7. VASOBRAL [Concomitant]
  8. LEUPROLIDE ACETATE [Suspect]
     Indication: PROSTATE CANCER
     Route: 058
     Dates: start: 20070803
  9. NIDREL [Concomitant]

REACTIONS (3)
  - URINARY TRACT INFECTION [None]
  - URINARY RETENTION [None]
  - PROSTATIC OBSTRUCTION [None]
